FAERS Safety Report 9867100 (Version 1)
Quarter: 2014Q1

REPORT INFORMATION
  Report Type: Spontaneous
  Country: US (occurrence: None)
  Receive Date: 20140131
  Receipt Date: 20140131
  Transmission Date: 20141002
  Serious: Yes (Death)
  Sender: FDA-Public Use
  Company Number: 2014AP000574

PATIENT
  Age: 84 Year
  Sex: Male

DRUGS (5)
  1. AMLODIPINE BESYLATE [Suspect]
     Route: 048
  2. LOSARTAN POTASSIUM TABLETS [Suspect]
     Route: 048
  3. CARVEDILOL TABLETS [Suspect]
     Route: 048
  4. CLONAZEPAM TABLETS, USP [Suspect]
     Route: 048
  5. FUROSEMIDE [Suspect]

REACTIONS (1)
  - Death [None]
